FAERS Safety Report 22265421 (Version 1)
Quarter: 2023Q2

REPORT INFORMATION
  Report Type: Spontaneous
  Country: US (occurrence: US)
  Receive Date: 20230428
  Receipt Date: 20230428
  Transmission Date: 20230722
  Serious: No
  Sender: FDA-Public Use
  Company Number: US-MYOVANT SCIENCES GMBH-2023MYSCI0300126

PATIENT
  Age: 78 Year
  Sex: Male

DRUGS (9)
  1. ORGOVYX [Suspect]
     Active Substance: RELUGOLIX
     Indication: Prostate cancer
     Dosage: 360 MILLIGRAM, ONE TIME DOSE
     Route: 048
  2. ORGOVYX [Suspect]
     Active Substance: RELUGOLIX
     Dosage: 120 MILLIGRAM, QD
     Route: 048
  3. LOSARTAN [Concomitant]
     Active Substance: LOSARTAN
     Indication: Product used for unknown indication
     Dosage: 100 MILLIGRAM, QD
     Route: 065
  4. XTANDI [Concomitant]
     Active Substance: ENZALUTAMIDE
     Indication: Prostate cancer
     Dosage: 40 MILLIGRAM, QID
     Route: 065
  5. ELIQUIS [Concomitant]
     Active Substance: APIXABAN
     Indication: Thrombosis
     Dosage: 5 MILLIGRAM, BID
     Route: 065
  6. AMLODIPINE [Concomitant]
     Active Substance: AMLODIPINE BESYLATE
     Indication: Product used for unknown indication
     Dosage: 5 MILLIGRAM, QD
     Route: 065
  7. ATORVASTATIN [Concomitant]
     Active Substance: ATORVASTATIN
     Indication: Blood pressure abnormal
     Dosage: UNK, QD
     Route: 065
  8. CARVEDILOL [Concomitant]
     Active Substance: CARVEDILOL
     Indication: Product used for unknown indication
     Dosage: 6.25 MILLIGRAM, QD
     Route: 065
  9. FINASTERIDE [Concomitant]
     Active Substance: FINASTERIDE
     Indication: Product used for unknown indication
     Dosage: 5 MILLIGRAM, QD
     Route: 065

REACTIONS (1)
  - Therapy interrupted [Not Recovered/Not Resolved]

NARRATIVE: CASE EVENT DATE: 20230303
